FAERS Safety Report 15061881 (Version 1)
Quarter: 2018Q2

REPORT INFORMATION
  Report Type: Spontaneous
  Country: ES (occurrence: ES)
  Receive Date: 20180625
  Receipt Date: 20180625
  Transmission Date: 20180711
  Serious: Yes (Death, Disabling, Other)
  Sender: FDA-Public Use
  Company Number: ES-BAYER-2018-115275

PATIENT
  Age: 76 Year
  Sex: Male
  Weight: 92 kg

DRUGS (2)
  1. STIVARGA [Suspect]
     Active Substance: REGORAFENIB
     Indication: HEPATOCELLULAR CARCINOMA
     Dosage: 160 MG PER DAY IN 3-WEEK CYCLES WITH ONE WEEK REST
     Dates: start: 201503, end: 201507
  2. NEXAVAR [Suspect]
     Active Substance: SORAFENIB
     Indication: HEPATOCELLULAR CARCINOMA
     Dosage: 400 MG, BID
     Dates: start: 201410

REACTIONS (29)
  - Mucosal inflammation [None]
  - General physical health deterioration [None]
  - Anxiety [Recovering/Resolving]
  - Decreased appetite [None]
  - Oedema peripheral [None]
  - Quality of life decreased [None]
  - Stomatitis [None]
  - Eating disorder [None]
  - Erythema [None]
  - Decreased activity [None]
  - Blister [None]
  - Dyspnoea [None]
  - Death [Fatal]
  - Dyspepsia [None]
  - Headache [None]
  - Asthenia [Recovering/Resolving]
  - Odynophagia [None]
  - Weight decreased [None]
  - Hyperkeratosis [None]
  - Abdominal pain upper [None]
  - Insomnia [None]
  - Palmar-plantar erythrodysaesthesia syndrome [None]
  - Decreased appetite [None]
  - Pain in extremity [None]
  - Decreased appetite [Recovering/Resolving]
  - Paraesthesia [None]
  - Pain of skin [None]
  - Back pain [None]
  - Abdominal distension [None]

NARRATIVE: CASE EVENT DATE: 201412
